FAERS Safety Report 7538940-7 (Version None)
Quarter: 2011Q2

REPORT INFORMATION
  Report Type: 
  Country: None (occurrence: None)
  Receive Date: 20110603
  Receipt Date: 20110520
  Transmission Date: 20111010
  Serious: Yes (Life-Threatening, Hospitalization)
  Sender: FDA-Public Use
  Company Number: 1000020849

PATIENT
  Age: 51 Year
  Sex: Female

DRUGS (6)
  1. ENOXAPARIN SODIUM [Suspect]
     Dosage: 80 MG (80 MG, 1 IN 1 D), SUBCUTANEOUS
     Route: 058
     Dates: start: 20100301, end: 20100407
  2. OMEPRAZOLE [Concomitant]
  3. ATORVASTATIN CALCIUM [Concomitant]
  4. PREDNISONE [Suspect]
     Dosage: 5 MG (5 MG, 1 IN 1 D), ORAL
     Route: 048
  5. SALICYLIC ACID (SALICYLIC ACID) (TABLETS) [Suspect]
     Dosage: 100 MG (100 MG, 1 IN 1 D), ORAL
     Route: 048
     Dates: start: 20100301, end: 20100407
  6. CITALOPRAM HYDROBROMIDE [Suspect]
     Dosage: 20 MG (20 MG, 1 IN 1 D), ORAL
     Route: 048
     Dates: start: 20070101

REACTIONS (9)
  - INTRA-ABDOMINAL HAEMATOMA [None]
  - DRUG INTERACTION [None]
  - HAEMOGLOBIN DECREASED [None]
  - BACK PAIN [None]
  - PAIN IN EXTREMITY [None]
  - HAEMATOCRIT DECREASED [None]
  - HAEMODIALYSIS [None]
  - HAEMORRHAGE [None]
  - RETROPERITONEAL HAEMATOMA [None]
